FAERS Safety Report 9298204 (Version 1)
Quarter: 2013Q1

REPORT INFORMATION
  Report Type: Spontaneous
  Country: US (occurrence: None)
  Receive Date: 20121227
  Receipt Date: 20121227
  Transmission Date: 20140127
  Serious: No
  Sender: FDA-Public Use
  Company Number: PHEH2012US009725

PATIENT
  Age: 60 Year
  Sex: Female
  Weight: 68 kg

DRUGS (7)
  1. AFINITOR [Suspect]
     Indication: NEUROENDOCRINE CARCINOMA
     Route: 048
  2. CREON (AMYLASE, LIPASE, PANCREATIN, PROTEASE) [Concomitant]
  3. ZOLOFT (SERTRALINE HYDROCHLORIDE) [Concomitant]
  4. METOCLOPRAMID (METOCLOPRAMIDE HYDROCHLORIDE) [Concomitant]
  5. WARFARIN (WARFARIN) [Concomitant]
  6. OCTREOTIDE (OCTREOTIDE) [Concomitant]
  7. VITAMIN D (ERGOCALCIFEROL) [Concomitant]

REACTIONS (5)
  - Contusion [None]
  - Constipation [None]
  - Fatigue [None]
  - Diarrhoea [None]
  - Blood glucose increased [None]
